FAERS Safety Report 19269162 (Version 1)
Quarter: 2021Q2

REPORT INFORMATION
  Report Type: Spontaneous
  Country: JP (occurrence: JP)
  Receive Date: 20210517
  Receipt Date: 20210517
  Transmission Date: 20210717
  Serious: Yes (Other)
  Sender: FDA-Public Use
  Company Number: JP-PFIZER INC-2021510453

PATIENT
  Sex: Male

DRUGS (2)
  1. LYRICA [Suspect]
     Active Substance: PREGABALIN
     Indication: BACK PAIN
     Dosage: 2 DF, 1X/DAY IN THE MORNING
     Route: 048
  2. LYRICA [Suspect]
     Active Substance: PREGABALIN
     Indication: HERNIA

REACTIONS (2)
  - Disease recurrence [Unknown]
  - Hepatic encephalopathy [Unknown]
